FAERS Safety Report 5466118-X (Version None)
Quarter: 2007Q3

REPORT INFORMATION
  Report Type: 
  Country: None (occurrence: None)
  Receive Date: 20070924
  Receipt Date: 20070912
  Transmission Date: 20080115
  Serious: Yes (Death)
  Sender: FDA-Public Use
  Company Number: JP-PFIZER INC-2007025926

PATIENT
  Age: 80 Year
  Sex: Male
  Weight: 67 kg

DRUGS (9)
  1. VFEND [Suspect]
     Indication: BRONCHOPULMONARY ASPERGILLOSIS
     Route: 042
     Dates: start: 20060423, end: 20060426
  2. ITRIZOLE [Concomitant]
     Route: 048
     Dates: start: 20060105, end: 20060419
  3. MICAFUNGIN [Concomitant]
     Route: 042
     Dates: start: 20060420
  4. ANTITHROMBOTIC AGENTS [Concomitant]
     Route: 042
     Dates: start: 20060423, end: 20060423
  5. GLOVENIN I [Concomitant]
     Route: 042
     Dates: start: 20060423, end: 20060424
  6. FRAGMIN [Concomitant]
     Route: 042
     Dates: start: 20060424
  7. MAXIPIME [Concomitant]
     Route: 042
     Dates: start: 20060420, end: 20060423
  8. MEROPEN [Concomitant]
     Route: 042
     Dates: start: 20060423
  9. ROPION [Concomitant]
     Route: 042
     Dates: start: 20060424, end: 20060424

REACTIONS (2)
  - DISSEMINATED INTRAVASCULAR COAGULATION [None]
  - PNEUMONIA BACTERIAL [None]
